FAERS Safety Report 8105251-0 (Version None)
Quarter: 2012Q1

REPORT INFORMATION
  Report Type: 
  Country: None (occurrence: None)
  Receive Date: 20120201
  Receipt Date: 20120124
  Transmission Date: 20120608
  Serious: Yes (Hospitalization, Other)
  Sender: FDA-Public Use
  Company Number: US-US-EMD SERONO, INC.-7077449

PATIENT
  Sex: Female

DRUGS (6)
  1. REBIF [Suspect]
     Route: 058
  2. ALLERGY MEDICATIONS [Concomitant]
  3. REBIF [Suspect]
     Route: 058
     Dates: start: 20110701
  4. REBIF [Suspect]
     Indication: MULTIPLE SCLEROSIS
     Route: 058
     Dates: start: 20110622, end: 20110701
  5. TOPAMAX [Concomitant]
     Indication: CONVULSION
  6. GABAPENTIN [Concomitant]

REACTIONS (10)
  - INFLUENZA LIKE ILLNESS [None]
  - MULTIPLE SCLEROSIS RELAPSE [None]
  - PYREXIA [None]
  - SINUSITIS [None]
  - CONVULSION [None]
  - MIGRAINE [None]
  - INJECTION SITE HAEMATOMA [None]
  - SINUS DISORDER [None]
  - INJECTION SITE SWELLING [None]
  - INJECTION SITE RASH [None]
